FAERS Safety Report 7315636-8 (Version None)
Quarter: 2011Q1

REPORT INFORMATION
  Report Type: 
  Country: None (occurrence: None)
  Receive Date: 20110225
  Receipt Date: 20110214
  Transmission Date: 20110831
  Serious: Yes (Other)
  Sender: FDA-Public Use
  Company Number: US-ROCHE-739007

PATIENT
  Sex: Female
  Weight: 84.8 kg

DRUGS (1)
  1. ACCUTANE [Suspect]
     Indication: ACNE
     Route: 065
     Dates: start: 19850101, end: 19900101

REACTIONS (7)
  - COLITIS ULCERATIVE [None]
  - INFLAMMATORY BOWEL DISEASE [None]
  - DIVERTICULITIS [None]
  - GASTROINTESTINAL INJURY [None]
  - DEPRESSION [None]
  - IRRITABLE BOWEL SYNDROME [None]
  - ANXIETY [None]
